FAERS Safety Report 24462022 (Version 1)
Quarter: 2024Q4

REPORT INFORMATION
  Report Type: Spontaneous
  Country: CN (occurrence: CN)
  Receive Date: 20241018
  Receipt Date: 20241018
  Transmission Date: 20250115
  Serious: No
  Sender: ROCHE
  Company Number: CN-ROCHE-3577993

PATIENT
  Age: 69 Year
  Sex: Male
  Weight: 67.0 kg

DRUGS (1)
  1. MABTHERA [Suspect]
     Active Substance: RITUXIMAB
     Indication: Lymphoma
     Route: 041
     Dates: start: 20240327, end: 20240327

REACTIONS (2)
  - Chills [Recovered/Resolved]
  - Pyrexia [Recovering/Resolving]

NARRATIVE: CASE EVENT DATE: 20240327
